FAERS Safety Report 6088691-3 (Version None)
Quarter: 2009Q1

REPORT INFORMATION
  Report Type: 
  Country: None (occurrence: None)
  Receive Date: 20090219
  Receipt Date: 20090121
  Transmission Date: 20090719
  Serious: Yes (Hospitalization)
  Sender: FDA-Public Use
  Company Number: DSA_33234_2009

PATIENT
  Age: 79 Year
  Sex: Female

DRUGS (1)
  1. MONNO-TILDIEM (NONO-TILIDIEM - DILTIAZEM HYDROCHLORIDE) (NOT SPECIFIED [Suspect]
     Indication: HYPERTENSION
     Dosage: (1 DF QD ORAL)
     Route: 048
     Dates: end: 20081201

REACTIONS (1)
  - CUTANEOUS LUPUS ERYTHEMATOSUS [None]
